FAERS Safety Report 6946384-1 (Version None)
Quarter: 2010Q3

REPORT INFORMATION
  Report Type: 
  Country: None (occurrence: None)
  Receive Date: 20100824
  Receipt Date: 20100816
  Transmission Date: 20110219
  Serious: Yes (Hospitalization)
  Sender: FDA-Public Use
  Company Number: WAES 1008USA02740

PATIENT
  Age: 60 Year
  Sex: Male

DRUGS (11)
  1. ZOCOR [Suspect]
     Dosage: PO
     Route: 048
     Dates: end: 20100701
  2. BLINDED THERAPY UNK [Suspect]
     Indication: THROMBOSIS PROPHYLAXIS
     Dosage: 10 MG/DAILY/PO
     Route: 048
     Dates: start: 20100510, end: 20100628
  3. BLINDED THERAPY UNK [Suspect]
     Indication: THROMBOSIS PROPHYLAXIS
     Dosage: 10 MG/DAILY/PO
     Route: 048
     Dates: start: 20100629, end: 20100701
  4. ASPIRIN [Concomitant]
  5. CLOPIDOGREL BISULFATE [Concomitant]
  6. FLUDROCORTISONE ACETATE [Concomitant]
  7. HEPARIN SODIUM [Concomitant]
  8. LISINOPRIL [Concomitant]
  9. METOPROLOL TARTRATE [Concomitant]
  10. MIDODRINE HYDROCHLORIDE [Concomitant]
  11. MORPHINE [Concomitant]

REACTIONS (11)
  - ALCOHOL WITHDRAWAL SYNDROME [None]
  - BLOOD PRESSURE INCREASED [None]
  - CAROTID ARTERY STENOSIS [None]
  - CEREBRAL ATROPHY [None]
  - CEREBRAL MICROANGIOPATHY [None]
  - GLIOSIS [None]
  - ORTHOSTATIC HYPOTENSION [None]
  - PNEUMONIA ASPIRATION [None]
  - RHABDOMYOLYSIS [None]
  - SEPSIS [None]
  - SYNCOPE [None]
